FAERS Safety Report 10497168 (Version 1)
Quarter: 2014Q3

REPORT INFORMATION
  Report Type: Spontaneous
  Country: US (occurrence: None)
  Receive Date: 20140815
  Receipt Date: 20140815
  Transmission Date: 20150326
  Serious: Yes (Other)
  Sender: FDA-Public Use
  Company Number: ADR-2014-00804

PATIENT
  Age: 48 Year
  Sex: Female

DRUGS (2)
  1. SUFENTA [Suspect]
     Active Substance: SUFENTANIL CITRATE
     Indication: PAIN
  2. BACLOFEN INTRATHECAL [Suspect]
     Active Substance: BACLOFEN
     Indication: PAIN

REACTIONS (2)
  - Pain [None]
  - No therapeutic response [None]

NARRATIVE: CASE EVENT DATE: 20131206
